FAERS Safety Report 4616559-5 (Version None)
Quarter: 2005Q1

REPORT INFORMATION
  Report Type: 
  Country: None (occurrence: None)
  Receive Date: 20050318
  Receipt Date: 20050302
  Transmission Date: 20050727
  Serious: Yes (Death)
  Sender: FDA-Public Use
  Company Number: L04-USA-07403-19

PATIENT
  Age: 56 Year
  Sex: Male

DRUGS (2)
  1. LEXAPRO [Suspect]
  2. VALPROIC ACID [Suspect]

REACTIONS (12)
  - ACIDOSIS [None]
  - APNOEA [None]
  - ATRIAL FIBRILLATION [None]
  - BRAIN DEATH [None]
  - COMA [None]
  - COMPLETED SUICIDE [None]
  - DIALYSIS [None]
  - HYPOTENSION [None]
  - INTENTIONAL MISUSE [None]
  - PNEUMONIA ASPIRATION [None]
  - RENAL FAILURE ACUTE [None]
  - VOMITING [None]
